FAERS Safety Report 13030662 (Version 3)
Quarter: 2017Q1

REPORT INFORMATION
  Report Type: Spontaneous
  Country: US (occurrence: US)
  Receive Date: 20161215
  Receipt Date: 20170206
  Transmission Date: 20170428
  Serious: Yes (Death, Other)
  Sender: FDA-Public Use
  Company Number: US-009507513-1612USA007264

PATIENT
  Age: 76 Year
  Sex: Female

DRUGS (2)
  1. KEYTRUDA [Suspect]
     Active Substance: PEMBROLIZUMAB
     Indication: SOFT TISSUE SARCOMA
     Dosage: UNK
     Route: 042
     Dates: start: 20160610, end: 20160610
  2. KEYTRUDA [Suspect]
     Active Substance: PEMBROLIZUMAB
     Dosage: UNK
     Route: 042
     Dates: start: 20160923, end: 20160923

REACTIONS (5)
  - Respiratory failure [Fatal]
  - Leiomyosarcoma [Fatal]
  - Product use issue [Unknown]
  - Cardiac failure [Fatal]
  - Neurofibrosarcoma [Fatal]

NARRATIVE: CASE EVENT DATE: 2016
